FAERS Safety Report 7389874-2 (Version None)
Quarter: 2011Q2

REPORT INFORMATION
  Report Type: 
  Country: None (occurrence: None)
  Receive Date: 20110401
  Receipt Date: 20110307
  Transmission Date: 20111010
  Serious: No
  Sender: FDA-Public Use
  Company Number: US-B.I. PHARMACEUTICALS,INC./RIDGEFIELD-2011-BP-07881BP

PATIENT
  Age: 82 Year
  Sex: Female

DRUGS (14)
  1. AMIODARONE [Concomitant]
     Dates: start: 20110303
  2. NORVASC [Concomitant]
  3. VITAMIN D [Concomitant]
  4. LANTUS [Concomitant]
  5. METFORMIN [Concomitant]
  6. LOPRESSOR [Concomitant]
  7. ASPIRIN [Concomitant]
  8. AVISTAS [Concomitant]
  9. FISH OIL [Concomitant]
  10. GLUCOTROL [Concomitant]
  11. ACTOS [Concomitant]
  12. VYTORIN [Concomitant]
  13. CENTRUM [Concomitant]
  14. PRADAXA [Suspect]
     Indication: ATRIAL FIBRILLATION
     Dosage: 150 MG
     Route: 048
     Dates: start: 20110303

REACTIONS (5)
  - RASH [None]
  - OEDEMA PERIPHERAL [None]
  - INSOMNIA [None]
  - HEART RATE INCREASED [None]
  - PALPITATIONS [None]
